FAERS Safety Report 16022504 (Version 5)
Quarter: 2022Q1

REPORT INFORMATION
  Report Type: Spontaneous
  Country: CA (occurrence: CA)
  Receive Date: 20190301
  Receipt Date: 20220303
  Transmission Date: 20220423
  Serious: Yes (Hospitalization, Other)
  Sender: FDA-Public Use
  Company Number: CA-AUROBINDO-AUR-APL-2019-010505

PATIENT
  Age: 79 Year
  Sex: Male

DRUGS (19)
  1. DONEPEZIL [Suspect]
     Active Substance: DONEPEZIL
     Indication: Dementia Alzheimer^s type
     Dosage: 10 MILLIGRAM, ONCE A DAY
     Route: 065
  2. CITALOPRAM [Suspect]
     Active Substance: CITALOPRAM HYDROBROMIDE
     Indication: Dementia Alzheimer^s type
     Dosage: 20 MILLIGRAM, ONCE A DAY
     Route: 065
  3. CITALOPRAM [Suspect]
     Active Substance: CITALOPRAM HYDROBROMIDE
     Indication: Agitation
  4. QUETIAPINE [Suspect]
     Active Substance: QUETIAPINE
     Indication: Dementia
     Dosage: UNK
     Route: 065
  5. QUETIAPINE [Suspect]
     Active Substance: QUETIAPINE
     Indication: Aggression
  6. GABAPENTIN [Suspect]
     Active Substance: GABAPENTIN
     Indication: Aggression
     Dosage: 900 MILLIGRAM, ONCE A DAY
     Route: 065
  7. OLANZAPINE [Suspect]
     Active Substance: OLANZAPINE
     Indication: Aggression
     Dosage: UNK
     Route: 065
  8. RISPERIDONE [Suspect]
     Active Substance: RISPERIDONE
     Indication: Dementia Alzheimer^s type
     Dosage: 2 MILLIGRAM, 2 EVERY 1 DAY
     Route: 065
  9. RISPERIDONE [Suspect]
     Active Substance: RISPERIDONE
     Indication: Agitation
  10. TRYPTOPHAN [Suspect]
     Active Substance: TRYPTOPHAN
     Indication: Dementia Alzheimer^s type
     Dosage: UNK
     Route: 065
  11. TRYPTOPHAN [Suspect]
     Active Substance: TRYPTOPHAN
     Indication: Agitation
  12. MEMANTINE [Suspect]
     Active Substance: MEMANTINE
     Indication: Dementia Alzheimer^s type
     Dosage: 20 MILLIGRAM, TWO TIMES A DAY
     Route: 065
  13. MEMANTINE [Suspect]
     Active Substance: MEMANTINE
     Indication: Aggression
  14. ARICEPT [Suspect]
     Active Substance: DONEPEZIL HYDROCHLORIDE
     Indication: Dementia
     Dosage: 10 MILLIGRAM, ONCE A DAY
     Route: 065
  15. ARICEPT [Suspect]
     Active Substance: DONEPEZIL HYDROCHLORIDE
     Indication: Agitation
  16. ARICEPT [Suspect]
     Active Substance: DONEPEZIL HYDROCHLORIDE
     Indication: Dementia Alzheimer^s type
  17. HALOPERIDOL [Suspect]
     Active Substance: HALOPERIDOL
     Indication: Agitation
     Dosage: UNK
     Route: 065
  18. HALOPERIDOL [Suspect]
     Active Substance: HALOPERIDOL
     Indication: Aggression
  19. VALPROIC ACID [Suspect]
     Active Substance: VALPROIC ACID
     Indication: Aggression
     Dosage: UNK
     Route: 065

REACTIONS (11)
  - Delirium [Recovered/Resolved]
  - Dementia [Unknown]
  - Aggression [Unknown]
  - Contusion [Unknown]
  - Irritability [Unknown]
  - Petechiae [Unknown]
  - Skin disorder [Unknown]
  - Akathisia [Unknown]
  - Abnormal behaviour [Unknown]
  - Therapeutic product effect incomplete [Unknown]
  - Drug ineffective [Unknown]
